FAERS Safety Report 11645098 (Version 1)
Quarter: 2015Q4

REPORT INFORMATION
  Report Type: Report from Study
  Country: JP (occurrence: JP)
  Receive Date: 20151020
  Receipt Date: 20151020
  Transmission Date: 20160304
  Serious: Yes (Death)
  Sender: FDA-Public Use
  Company Number: JP-JNJFOC-20151014606

PATIENT
  Age: 85 Year
  Sex: Female
  Weight: 47.9 kg

DRUGS (9)
  1. ALDACTONE A [Concomitant]
     Active Substance: SPIRONOLACTONE
     Route: 048
  2. PROTERNOL S [Concomitant]
     Route: 048
  3. XARELTO [Suspect]
     Active Substance: RIVAROXABAN
     Indication: CEREBROVASCULAR ACCIDENT PROPHYLAXIS
     Route: 048
     Dates: start: 20130910, end: 20141113
  4. DIART [Concomitant]
     Active Substance: AZOSEMIDE
     Route: 048
  5. XARELTO [Suspect]
     Active Substance: RIVAROXABAN
     Indication: THROMBOSIS PROPHYLAXIS
     Route: 048
     Dates: start: 20130910, end: 20141113
  6. ALLORIN [Concomitant]
     Route: 048
  7. FERROMIA [Concomitant]
     Active Substance: FERROUS CITRATE
     Route: 048
  8. BAYASPIRIN [Concomitant]
     Active Substance: ASPIRIN
     Route: 048
  9. TAKEPRON [Concomitant]
     Active Substance: LANSOPRAZOLE
     Route: 048

REACTIONS (1)
  - Ischaemic stroke [Fatal]

NARRATIVE: CASE EVENT DATE: 20141113
